FAERS Safety Report 8463625-2 (Version None)
Quarter: 2012Q2

REPORT INFORMATION
  Report Type: 
  Country: None (occurrence: None)
  Receive Date: 20120625
  Receipt Date: 20120619
  Transmission Date: 20120825
  Serious: Yes (Other)
  Sender: FDA-Public Use
  Company Number: US-PFIZER INC-2012127133

PATIENT
  Sex: Female
  Weight: 51.247 kg

DRUGS (8)
  1. CHANTIX [Suspect]
     Dosage: 0.5 MG, 1X/DAY
     Route: 048
     Dates: start: 20120529, end: 20120605
  2. CHANTIX [Suspect]
     Indication: SMOKING CESSATION THERAPY
     Dosage: UNK
     Route: 048
  3. CHANTIX [Suspect]
     Indication: EX-TOBACCO USER
     Dosage: 0.5 MG, 1X/DAY
     Route: 048
  4. CHANTIX [Suspect]
     Dosage: 0.5 MG, 1X/DAY
     Route: 048
     Dates: start: 20100102
  5. ENALAPRIL [Concomitant]
     Indication: HYPERTENSION
     Dosage: 10 MG, 1X/DAY
  6. AMLODIPINE [Concomitant]
     Indication: HYPERTENSION
     Dosage: 10 MG, 1X/DAY
  7. CHANTIX [Suspect]
     Dosage: 1 MG, 2X/DAY
     Route: 048
     Dates: start: 20100101, end: 20100101
  8. LAMOTRIGINE [Concomitant]
     Indication: CONVULSION
     Dosage: 150 MG, 2X/DAY

REACTIONS (11)
  - EPILEPSY [None]
  - MOVEMENT DISORDER [None]
  - MENTAL IMPAIRMENT [None]
  - AMNESIA [None]
  - EMOTIONAL DISORDER [None]
  - STRESS [None]
  - CRANIOCEREBRAL INJURY [None]
  - DYSPNOEA [None]
  - DISTURBANCE IN ATTENTION [None]
  - CONVULSION [None]
  - COUGH [None]
